FAERS Safety Report 14824051 (Version 1)
Quarter: 2018Q2

REPORT INFORMATION
  Report Type: Spontaneous
  Country: US (occurrence: US)
  Receive Date: 20180428
  Receipt Date: 20180428
  Transmission Date: 20180711
  Serious: No
  Sender: FDA-Public Use
  Company Number: US-TRIS PHARMA, INC-2018TRISPO00370

PATIENT

DRUGS (2)
  1. DEXTROMETHORPHAN POLISTIREX [Suspect]
     Active Substance: DEXTROMETHORPHAN HYDROBROMIDE
     Indication: COUGH
     Dosage: 60 MG (10 ML), BID (EVERY 12 HOURS)
     Route: 048
     Dates: start: 20180322, end: 20180325
  2. HALLS [Concomitant]
     Active Substance: MENTHOL
     Indication: PRODUCT USED FOR UNKNOWN INDICATION
     Dosage: UNK
     Route: 065
     Dates: start: 20180325

REACTIONS (3)
  - Urticaria [Recovering/Resolving]
  - Drug ineffective [Unknown]
  - Condition aggravated [Not Recovered/Not Resolved]

NARRATIVE: CASE EVENT DATE: 20180322
